FAERS Safety Report 7715677-2 (Version None)
Quarter: 2011Q3

REPORT INFORMATION
  Report Type: 
  Country: None (occurrence: None)
  Receive Date: 20110829
  Receipt Date: 20110823
  Transmission Date: 20111222
  Serious: Yes (Other)
  Sender: FDA-Public Use
  Company Number: GB-PFIZER INC-2011195958

PATIENT

DRUGS (2)
  1. SUNITINIB MALATE [Suspect]
     Dosage: 50 MG, DAILY 4 WEEKS ON, 2 WEEKS OFF
  2. ZOLEDRONIC ACID [Suspect]
     Indication: METASTASES TO BONE
     Dosage: 4 MG, EVERY 4 WEEKS

REACTIONS (1)
  - OSTEONECROSIS OF JAW [None]
